FAERS Safety Report 5091788-8 (Version None)
Quarter: 2006Q3

REPORT INFORMATION
  Report Type: 
  Country: None (occurrence: None)
  Receive Date: 20060829
  Receipt Date: 20060526
  Transmission Date: 20061208
  Serious: Yes (Other)
  Sender: FDA-Public Use
  Company Number: US-BRISTOL-MYERS SQUIBB COMPANY-13391255

PATIENT
  Age: 62 Year
  Sex: Male
  Weight: 77 kg

DRUGS (8)
  1. ERBITUX [Suspect]
     Indication: LARYNGEAL CANCER
     Route: 042
     Dates: start: 20060509, end: 20060509
  2. CISPLATIN [Suspect]
     Indication: LARYNGEAL CANCER
     Route: 042
     Dates: start: 20060509, end: 20060509
  3. TYLENOL [Concomitant]
     Indication: PREMEDICATION
     Dosage: PER ^GT^ (GASTRONOMY TUBE)
     Route: 048
  4. DIPHENHYDRAMINE [Concomitant]
     Indication: PREMEDICATION
     Route: 042
  5. PALONOSETRON [Concomitant]
     Route: 042
  6. DEXAMETHASONE [Concomitant]
     Route: 042
  7. LORAZEPAM [Concomitant]
     Dosage: PER ^GT^ (GASTRONOMY TUBE)
     Route: 048
  8. DOCUSATE [Concomitant]
     Dosage: TAKEN TWICE A DAY + EVERY NIGHT AS NEEDED.
     Route: 048

REACTIONS (1)
  - RENAL FAILURE [None]
